FAERS Safety Report 24054771 (Version 1)
Quarter: 2024Q3

REPORT INFORMATION
  Report Type: Spontaneous
  Country: DE (occurrence: DE)
  Receive Date: 20240705
  Receipt Date: 20240705
  Transmission Date: 20241016
  Serious: Yes (Hospitalization, Other)
  Sender: TEVA
  Company Number: None

PATIENT
  Age: 61 Year
  Sex: Female

DRUGS (2)
  1. SULFAMETHOXAZOLE\TRIMETHOPRIM [Suspect]
     Active Substance: SULFAMETHOXAZOLE\TRIMETHOPRIM
     Indication: Urinary tract infection
     Dosage: 1-0-1
     Route: 065
     Dates: start: 20240501, end: 202405
  2. AMOXICILLIN [Suspect]
     Active Substance: AMOXICILLIN
     Indication: Urinary tract infection
     Dosage: 1-0-1, ?AMOXICILLIN 1000
     Route: 065
     Dates: start: 202405

REACTIONS (10)
  - Drug intolerance [Recovering/Resolving]
  - Chromaturia [Recovering/Resolving]
  - Pruritus [Recovering/Resolving]
  - Transaminases increased [Recovering/Resolving]
  - Liver injury [Recovering/Resolving]
  - Jaundice [Recovering/Resolving]
  - Ocular icterus [Recovering/Resolving]
  - Hyponatraemia [Recovered/Resolved]
  - Drug-induced liver injury [Recovering/Resolving]
  - Blood bilirubin increased [Recovering/Resolving]

NARRATIVE: CASE EVENT DATE: 20240501
